FAERS Safety Report 4343971-4 (Version None)
Quarter: 2004Q2

REPORT INFORMATION
  Report Type: 
  Country: None (occurrence: None)
  Receive Date: 20040422
  Receipt Date: 20040412
  Transmission Date: 20050107
  Serious: Yes (Hospitalization)
  Sender: FDA-Public Use
  Company Number: FR-ROCHE-364171

PATIENT
  Age: 30 Year
  Sex: Female

DRUGS (2)
  1. LOXEN [Suspect]
     Indication: PREMATURE LABOUR
     Route: 042
     Dates: start: 20020127, end: 20020129
  2. BETAMETHASONE [Concomitant]
     Route: 030
     Dates: start: 20020127, end: 20020129

REACTIONS (9)
  - ABDOMINAL PAIN UPPER [None]
  - ACUTE PULMONARY OEDEMA [None]
  - COMPLICATIONS OF MATERNAL EXPOSURE TO THERAPEUTIC DRUGS [None]
  - DYSPNOEA [None]
  - HYPERTHERMIA [None]
  - HYPOXIA [None]
  - PULMONARY HYPERTENSION [None]
  - TACHYCARDIA [None]
  - TRICUSPID VALVE INCOMPETENCE [None]
